FAERS Safety Report 10655890 (Version 5)
Quarter: 2015Q1

REPORT INFORMATION
  Report Type: Spontaneous
  Country: US (occurrence: US)
  Receive Date: 20141216
  Receipt Date: 20150325
  Transmission Date: 20150720
  Serious: Yes (Other)
  Sender: FDA-Public Use
  Company Number: US-009507513-1110USA03457

PATIENT
  Sex: Male
  Weight: 84.58 kg

DRUGS (1)
  1. PROPECIA [Suspect]
     Active Substance: FINASTERIDE
     Indication: ANDROGENETIC ALOPECIA
     Dosage: 1 MG, QD
     Route: 048
     Dates: start: 20060210, end: 200606

REACTIONS (20)
  - Restless legs syndrome [Unknown]
  - Secondary hypogonadism [Unknown]
  - Primary hypogonadism [Unknown]
  - Vitamin D deficiency [Unknown]
  - Cognitive disorder [Unknown]
  - Diverticulum [Unknown]
  - Sexual dysfunction [Unknown]
  - Ejaculation disorder [Unknown]
  - Semen volume decreased [Unknown]
  - Depression [Unknown]
  - Loss of libido [Recovered/Resolved]
  - Hyperlipidaemia [Unknown]
  - Polyp [Unknown]
  - Androgen deficiency [Unknown]
  - Erectile dysfunction [Unknown]
  - Anxiety [Unknown]
  - Hypoacusis [Unknown]
  - Vitamin D deficiency [Unknown]
  - Back pain [Unknown]
  - Sex hormone binding globulin decreased [Unknown]

NARRATIVE: CASE EVENT DATE: 2006
